FAERS Safety Report 6505871-0 (Version None)
Quarter: 2009Q4

REPORT INFORMATION
  Report Type: 
  Country: None (occurrence: None)
  Receive Date: 20091218
  Receipt Date: 20091208
  Transmission Date: 20100525
  Serious: Yes (Death)
  Sender: FDA-Public Use
  Company Number: FR-BRISTOL-MYERS SQUIBB COMPANY-14897573

PATIENT
  Sex: Male

DRUGS (1)
  1. ERBITUX [Suspect]
     Route: 042

REACTIONS (1)
  - INTESTINAL ISCHAEMIA [None]
